FAERS Safety Report 22274445 (Version 1)
Quarter: 2023Q2

REPORT INFORMATION
  Report Type: Other
  Country: US (occurrence: None)
  Receive Date: 20230502
  Receipt Date: 20230502
  Transmission Date: 20230721
  Serious: No
  Sender: FDA-Public Use
  Company Number: US-ROCHE-3340497

PATIENT
  Age: 58 Year
  Sex: Female
  Weight: 70.370 kg

DRUGS (7)
  1. OCREVUS [Suspect]
     Active Substance: OCRELIZUMAB
     Indication: Primary progressive multiple sclerosis
     Dosage: 300MG IV EVERY 2 WEEKS?DOT: 05-JUN-2020, 14-NOV-2022, 11-NOV-2021, 27-MAY-2021, 07-DEC-2017, 28-?JUN
     Route: 042
     Dates: start: 2020
  2. CYMBALTA [Concomitant]
     Active Substance: DULOXETINE HYDROCHLORIDE
     Indication: Pain in extremity
     Route: 048
  3. PREGABALIN [Concomitant]
     Active Substance: PREGABALIN
     Indication: Pain
     Route: 048
  4. MODAFINIL [Concomitant]
     Active Substance: MODAFINIL
     Route: 048
     Dates: start: 1996
  5. MENEST [Concomitant]
     Active Substance: ESTROGENS, ESTERIFIED
     Indication: Hot flush
     Route: 048
     Dates: start: 2000
  6. ALIGN PROBIOTIC DIGESTIVE SUPPORT [Concomitant]
     Route: 048
     Dates: start: 2020
  7. BIOTIN [Concomitant]
     Active Substance: BIOTIN
     Dosage: DISSOLVABLE TABLET ONCE DAILY AS NEEDED FOR HAIR
     Route: 048
     Dates: start: 2010

REACTIONS (4)
  - Pruritus [Recovered/Resolved]
  - Fatigue [Recovered/Resolved]
  - Alopecia [Not Recovered/Not Resolved]
  - COVID-19 [Recovered/Resolved]

NARRATIVE: CASE EVENT DATE: 20200101
